FAERS Safety Report 8910076 (Version 1)
Quarter: 2012Q4

REPORT INFORMATION
  Report Type: 
  Country: DE (occurrence: ES)
  Receive Date: 20121115
  Receipt Date: 20121115
  Transmission Date: 20130627
  Serious: Yes (Other)
  Sender: FDA-Public Use
  Company Number: ES-BRISTOL-MYERS SQUIBB COMPANY-17080037

PATIENT
  Age: 38 Year
  Sex: Female

DRUGS (4)
  1. ABILIFY DISCMELT TABS [Suspect]
     Indication: BIPOLAR I DISORDER
     Route: 048
     Dates: start: 20120921
  2. RISPERIDONE [Suspect]
  3. LORAZEPAM [Suspect]
  4. EUTIROX [Concomitant]
     Indication: PRIMARY HYPOTHYROIDISM

REACTIONS (2)
  - Abortion spontaneous [Unknown]
  - Pregnancy [Recovered/Resolved]
